FAERS Safety Report 5958418-1 (Version None)
Quarter: 2008Q4

REPORT INFORMATION
  Report Type: 
  Country: None (occurrence: None)
  Receive Date: 20081119
  Receipt Date: 20081111
  Transmission Date: 20090506
  Serious: Yes (Hospitalization, Other)
  Sender: FDA-Public Use
  Company Number: ES-JNJFOC-20081003961

PATIENT
  Sex: Female

DRUGS (4)
  1. INVEGA [Suspect]
     Indication: MAJOR DEPRESSION
     Route: 048
  2. VENLAFAXINE HCL [Concomitant]
     Indication: DEPRESSION
  3. PREGABALINE [Concomitant]
     Indication: DEPRESSION
  4. ALPRAZOLAM [Concomitant]
     Indication: DEPRESSION

REACTIONS (3)
  - FACE OEDEMA [None]
  - ORAL CANDIDIASIS [None]
  - URINARY RETENTION [None]
